FAERS Safety Report 9245629 (Version 1)
Quarter: 2013Q2

REPORT INFORMATION
  Report Type: Spontaneous
  Country: FR (occurrence: FR)
  Receive Date: 20130422
  Receipt Date: 20130422
  Transmission Date: 20140414
  Serious: Yes (Other)
  Sender: FDA-Public Use
  Company Number: FR-PFIZER INC-2013120236

PATIENT
  Age: 47 Year
  Sex: Female

DRUGS (2)
  1. ADVIL [Suspect]
     Dosage: 400 MG, SINGLE
     Route: 048
     Dates: start: 20130326
  2. FERVEX [Suspect]
     Dosage: 1 DF, SINGLE
     Route: 048
     Dates: start: 20130326

REACTIONS (1)
  - Rash scarlatiniform [Recovered/Resolved]
